FAERS Safety Report 8536527-0 (Version None)
Quarter: 2012Q3

REPORT INFORMATION
  Report Type: 
  Country: None (occurrence: None)
  Receive Date: 20120712
  Receipt Date: 20120703
  Transmission Date: 20120928
  Serious: Yes (Other)
  Sender: FDA-Public Use
  Company Number: DKLU1082810

PATIENT
  Sex: Male

DRUGS (7)
  1. ETOPOSIDE [Suspect]
     Dosage: 1 DF DOSAGE
  2. CARBOPLATIN [Suspect]
     Dosage: 2.275 G GRAM(S),  INTRAVENOUS (NOT OTHERWISE SPECIFIED)
     Route: 042
  3. VINCRISTINE SULFATE [Suspect]
  4. ADRIAMYCIN PFS [Suspect]
  5. CYCLOPHOSPHAMIDE [Suspect]
     Dosage: , INTRAVENOUS (NOT OTHERWISE SPECIFIED)
     Route: 042
  6. COSMEGEN [Suspect]
     Dosage: , INTRAVENOUS (NOT OTHERWISE SPECIFIED)
     Route: 042
  7. IFOSFAMIDE(IFOSFAMIDE)(POWDER FOR SOLUTION FOR INJECTION) [Concomitant]
     Dosage: 1 OF DOSAGE FORM, INTRAVENOUS (NOT OTHERWISE SPECIFIED)
     Route: 042

REACTIONS (3)
  - FANCONI SYNDROME [None]
  - RICKETS [None]
  - MYOPATHY [None]
